FAERS Safety Report 6993019-8 (Version None)
Quarter: 2010Q3

REPORT INFORMATION
  Report Type: 
  Country: None (occurrence: None)
  Receive Date: 20100916
  Receipt Date: 20100916
  Transmission Date: 20110219
  Serious: No
  Sender: FDA-Public Use
  Company Number: None

PATIENT
  Age: 32 Year
  Sex: Female
  Weight: 67.1324 kg

DRUGS (1)
  1. AMITIZA [Suspect]
     Indication: IRRITABLE BOWEL SYNDROME
     Dosage: 1 CAPSULE, 2 TIMES A DAY
     Dates: start: 20100824, end: 20100824

REACTIONS (2)
  - CHEST PAIN [None]
  - DIARRHOEA [None]
